FAERS Safety Report 22702728 (Version 2)
Quarter: 2023Q4

REPORT INFORMATION
  Report Type: Report from Study
  Country: US (occurrence: US)
  Receive Date: 20230713
  Receipt Date: 20231012
  Transmission Date: 20240110
  Serious: Yes (Hospitalization, Other)
  Sender: FDA-Public Use
  Company Number: US-BoehringerIngelheim-2023-BI-249033

PATIENT
  Age: 88 Year
  Sex: Female

DRUGS (2)
  1. OFEV [Suspect]
     Active Substance: NINTEDANIB
     Indication: Idiopathic pulmonary fibrosis
     Route: 048
     Dates: start: 20210501, end: 20210801
  2. OFEV [Suspect]
     Active Substance: NINTEDANIB
     Dosage: UNKNOWN DOSE
     Route: 048
     Dates: end: 202309

REACTIONS (8)
  - Fall [Unknown]
  - Patella fracture [Unknown]
  - Asthenia [Recovered/Resolved]
  - Vomiting [Unknown]
  - Memory impairment [Not Recovered/Not Resolved]
  - Gastrointestinal disorder [Unknown]
  - Diarrhoea [Unknown]
  - Abdominal discomfort [Unknown]

NARRATIVE: CASE EVENT DATE: 20210501
